FAERS Safety Report 26048228 (Version 1)
Quarter: 2025Q4

REPORT INFORMATION
  Report Type: Spontaneous
  Country: AR (occurrence: AR)
  Receive Date: 20251114
  Receipt Date: 20251114
  Transmission Date: 20260118
  Serious: Yes (Other)
  Sender: SANDOZ
  Company Number: AR-SANDOZ-SDZ2025AR039413

PATIENT
  Sex: Male
  Weight: 36.9 kg

DRUGS (2)
  1. OMNITROPE [Suspect]
     Active Substance: SOMATROPIN
     Indication: Foetal growth restriction
     Dosage: 1.4 MG, QD  (7 DAYS A WEEK)
     Route: 058
     Dates: start: 20250124
  2. OMNITROPE [Suspect]
     Active Substance: SOMATROPIN
     Dosage: 1.6, 7 DAYS A WEEK
     Route: 065
     Dates: start: 20250124

REACTIONS (6)
  - Syncope [Unknown]
  - Vomiting [Unknown]
  - Pyrexia [Unknown]
  - Headache [Unknown]
  - Weight decreased [Unknown]
  - Product use in unapproved indication [Unknown]

NARRATIVE: CASE EVENT DATE: 20250101
